FAERS Safety Report 5598584-3 (Version None)
Quarter: 2008Q1

REPORT INFORMATION
  Report Type: 
  Country: None (occurrence: None)
  Receive Date: 20080122
  Receipt Date: 20080110
  Transmission Date: 20080703
  Serious: Yes (Hospitalization)
  Sender: FDA-Public Use
  Company Number: FR-SANOFI-SYNTHELABO-A02200800083

PATIENT
  Age: 16 Year
  Sex: Female

DRUGS (3)
  1. DEROXAT [Concomitant]
     Indication: DEPRESSION
     Route: 048
     Dates: start: 20070830
  2. DEPAKOTE [Concomitant]
     Indication: AFFECTIVE DISORDER
     Route: 048
     Dates: start: 20070618
  3. STILNOX [Suspect]
     Indication: SLEEP DISORDER
     Route: 048
     Dates: start: 20070912, end: 20071009

REACTIONS (5)
  - ABNORMAL BEHAVIOUR [None]
  - AGGRESSION [None]
  - CONFUSIONAL STATE [None]
  - HYPNAGOGIC HALLUCINATION [None]
  - INTENTIONAL SELF-INJURY [None]
